FAERS Safety Report 12775587 (Version 1)
Quarter: 2016Q3

REPORT INFORMATION
  Report Type: Spontaneous
  Country: MX (occurrence: MX)
  Receive Date: 20160923
  Receipt Date: 20160923
  Transmission Date: 20161109
  Serious: Yes (Death)
  Sender: FDA-Public Use
  Company Number: MX-PFIZER INC-2016442091

PATIENT
  Age: 34 Year
  Sex: Male

DRUGS (2)
  1. ANFOTERICINA B [Concomitant]
  2. FLUCONAZOLE. [Suspect]
     Active Substance: FLUCONAZOLE
     Dosage: 300 MG, UNK

REACTIONS (1)
  - Death [Fatal]
